FAERS Safety Report 22962655 (Version 3)
Quarter: 2024Q3

REPORT INFORMATION
  Report Type: Spontaneous
  Country: IN (occurrence: IN)
  Receive Date: 20230920
  Receipt Date: 20240828
  Transmission Date: 20241017
  Serious: Yes (Other)
  Sender: PFIZER
  Company Number: IN-PFIZER INC-PV202300095419

PATIENT
  Age: 60 Year
  Sex: Male

DRUGS (1)
  1. CRIZOTINIB [Suspect]
     Active Substance: CRIZOTINIB
     Indication: Lung cancer metastatic
     Dosage: 250 MG, 2X/DAY FOR 3 MONTHS, 1-0-1
     Route: 048
     Dates: start: 202109

REACTIONS (8)
  - Hydrocephalus [Unknown]
  - Blood pressure increased [Not Recovered/Not Resolved]
  - Neoplasm progression [Unknown]
  - Magnetic resonance imaging head abnormal [Unknown]
  - Product dose omission in error [Unknown]
  - Respiratory rate increased [Recovered/Resolved]
  - Heart rate increased [Unknown]
  - Product prescribing error [Unknown]

NARRATIVE: CASE EVENT DATE: 20221101
